FAERS Safety Report 4677545-2 (Version None)
Quarter: 2005Q2

REPORT INFORMATION
  Report Type: 
  Country: None (occurrence: None)
  Receive Date: 20050527
  Receipt Date: 20050527
  Transmission Date: 20051028
  Serious: Yes (Death)
  Sender: FDA-Public Use
  Company Number: None

PATIENT
  Sex: Male
  Weight: 90.7 kg

DRUGS (1)
  1. TNK-TPA  BOEHRINGER INGELHEIM [Suspect]
     Indication: ACUTE MYOCARDIAL INFARCTION
     Dosage: 50MG  ONE DOSE INTRAVENOUS
     Route: 042
     Dates: start: 20050303, end: 20050303

REACTIONS (4)
  - DYSARTHRIA [None]
  - FACIAL PALSY [None]
  - HYPOAESTHESIA [None]
  - LOSS OF CONSCIOUSNESS [None]
